FAERS Safety Report 16761499 (Version 1)
Quarter: 2019Q3

REPORT INFORMATION
  Report Type: Spontaneous
  Country: US (occurrence: US)
  Receive Date: 20190830
  Receipt Date: 20190830
  Transmission Date: 20191005
  Serious: No
  Sender: FDA-Public Use
  Company Number: US-TEVA-2019-US-1099355

PATIENT
  Sex: Female

DRUGS (1)
  1. ATENOLOL TABLETS [Suspect]
     Active Substance: ATENOLOL
     Indication: BLOOD PRESSURE MEASUREMENT
     Dosage: SINCE APPROXIMATELY 2004 OR 2005
     Route: 065

REACTIONS (5)
  - Feeling hot [Unknown]
  - Hyperhidrosis [Unknown]
  - Nausea [Unknown]
  - Tremor [Unknown]
  - Product quality issue [Unknown]

NARRATIVE: CASE EVENT DATE: 201908
